FAERS Safety Report 9851037 (Version 1)
Quarter: 2014Q1

REPORT INFORMATION
  Report Type: Spontaneous
  Country: US (occurrence: US)
  Receive Date: 20140128
  Receipt Date: 20140128
  Transmission Date: 20141002
  Serious: No
  Sender: FDA-Public Use
  Company Number: US-DYAX CORP.-2013DX000039

PATIENT
  Age: 43 Year
  Sex: Female
  Weight: 80.81 kg

DRUGS (3)
  1. KALBITOR [Suspect]
     Indication: HEREDITARY ANGIOEDEMA
     Route: 058
     Dates: start: 20130207, end: 20130207
  2. KALBITOR [Suspect]
     Route: 058
  3. KALBITOR [Suspect]
     Route: 058

REACTIONS (1)
  - Injection site rash [Recovered/Resolved]
